FAERS Safety Report 23667451 (Version 1)
Quarter: 2024Q1

REPORT INFORMATION
  Report Type: Spontaneous
  Country: US (occurrence: US)
  Receive Date: 20240325
  Receipt Date: 20240325
  Transmission Date: 20240409
  Serious: Yes (Other)
  Sender: FDA-Public Use
  Company Number: US-HALEON-USCH2024AMR015031

PATIENT

DRUGS (11)
  1. IBUPROFEN [Suspect]
     Active Substance: IBUPROFEN
     Indication: Product used for unknown indication
     Dosage: UNK
     Route: 048
  2. CALCITRIOL [Concomitant]
     Active Substance: CALCITRIOL
     Indication: Blood parathyroid hormone
     Dosage: 0.5 ?G, QD
  3. CALCIUM ACETATE [Concomitant]
     Active Substance: CALCIUM ACETATE
     Indication: Product used for unknown indication
     Dosage: 667 MG, 6 PER DAY
     Route: 048
  4. VITAMIN D3 [Concomitant]
     Active Substance: CHOLECALCIFEROL
     Indication: Product used for unknown indication
     Dosage: 1000 IU, QD
  5. MIRABEGRON [Concomitant]
     Active Substance: MIRABEGRON
     Indication: Hypertonic bladder
     Dosage: 25 MG, QD
  6. DULOXETINE [Concomitant]
     Active Substance: DULOXETINE
     Indication: Depression
     Dosage: 60 MG, QD
  7. LEVOTHYROXINE [Concomitant]
     Active Substance: LEVOTHYROXINE\LEVOTHYROXINE SODIUM
     Indication: Hypothyroidism
     Dosage: 0.15 MG, QD
  8. GABAPENTIN [Concomitant]
     Active Substance: GABAPENTIN
     Indication: Pain
     Dosage: 100 MG, QD
  9. SIMVASTATIN [Concomitant]
     Active Substance: SIMVASTATIN
     Indication: Hypercholesterolaemia
     Dosage: 40 MG, QD
  10. VITAMIN B12 [Concomitant]
     Active Substance: CYANOCOBALAMIN
     Indication: Product used for unknown indication
     Dosage: 1000 ?G, QD
  11. VITAMIN C [Concomitant]
     Active Substance: ASCORBIC ACID
     Indication: Product used for unknown indication
     Dosage: 500 MG, QD

REACTIONS (12)
  - Chronic kidney disease-mineral and bone disorder [Unknown]
  - Osteoporosis [Unknown]
  - End stage renal disease [Unknown]
  - Renal impairment [Unknown]
  - Fatigue [Unknown]
  - Back pain [Unknown]
  - Arthralgia [Unknown]
  - Depression [Unknown]
  - Insomnia [Unknown]
  - Balance disorder [Unknown]
  - Gait disturbance [Unknown]
  - Low turnover osteopathy [Unknown]
